FAERS Safety Report 15745176 (Version 2)
Quarter: 2019Q2

REPORT INFORMATION
  Report Type: Spontaneous
  Country: US (occurrence: US)
  Receive Date: 20181220
  Receipt Date: 20190621
  Transmission Date: 20190711
  Serious: No
  Sender: FDA-Public Use
  Company Number: US-ADAMAS PHARMA, LLC-2018ADA02041

PATIENT
  Sex: Male
  Weight: 68.03 kg

DRUGS (4)
  1. DONEPEZIL HCL [Concomitant]
     Active Substance: DONEPEZIL HYDROCHLORIDE
     Dosage: 5 MG, 1X/DAY IN THE MORNING
  2. GOCOVRI [Suspect]
     Active Substance: AMANTADINE
     Indication: DYSKINESIA
     Dosage: 137 MG 1X/DAY AT NIGHT
     Route: 048
     Dates: start: 20180419, end: 20190410
  3. GLYCOPYRROLATE. [Concomitant]
     Active Substance: GLYCOPYRROLATE
     Dosage: 0.5 MG 3X/DAY
     Route: 048
  4. CARBIDOPA-LEVODOPA [Concomitant]
     Active Substance: CARBIDOPA\LEVODOPA
     Dosage: 25-100MG 4X/DAY
     Route: 048

REACTIONS (2)
  - Delusion [Not Recovered/Not Resolved]
  - Hallucinations, mixed [Not Recovered/Not Resolved]

NARRATIVE: CASE EVENT DATE: 2018
